FAERS Safety Report 7715250-6 (Version None)
Quarter: 2011Q3

REPORT INFORMATION
  Report Type: 
  Country: None (occurrence: None)
  Receive Date: 20110829
  Receipt Date: 20110824
  Transmission Date: 20111222
  Serious: Yes (Hospitalization)
  Sender: FDA-Public Use
  Company Number: US-PFIZER INC-2011188835

PATIENT
  Age: 83 Year
  Sex: Female

DRUGS (2)
  1. WARFARIN [Concomitant]
     Indication: ATRIAL FIBRILLATION
     Dosage: UNK
  2. CORDARONE [Suspect]
     Indication: ATRIAL FIBRILLATION
     Dosage: UNK
     Dates: start: 20110603, end: 20110703

REACTIONS (4)
  - CHEST DISCOMFORT [None]
  - ANAEMIA [None]
  - OBLITERATIVE BRONCHIOLITIS [None]
  - DYSPNOEA [None]
